FAERS Safety Report 10949612 (Version 1)
Quarter: 2015Q1

REPORT INFORMATION
  Report Type: Spontaneous
  Country: CA (occurrence: CA)
  Receive Date: 20150324
  Receipt Date: 20150324
  Transmission Date: 20150721
  Serious: Yes (Life-Threatening, Hospitalization, Other)
  Sender: FDA-Public Use
  Company Number: CA-TEVA-549244ACC

PATIENT
  Age: 13 Year
  Sex: Female
  Weight: 64 kg

DRUGS (2)
  1. SEPTRA INJECTION [Concomitant]
     Dosage: UNKNOWN FORM STRENGTH
     Route: 065
  2. MORPHINE [Suspect]
     Active Substance: MORPHINE
     Indication: ANALGESIC THERAPY
     Dosage: UNKNOWN FORM STRENGTH
     Route: 040

REACTIONS (2)
  - Haemodynamic instability [Recovered/Resolved]
  - Respiratory failure [Recovered/Resolved]
